FAERS Safety Report 25570698 (Version 1)
Quarter: 2025Q3

REPORT INFORMATION
  Report Type: Spontaneous
  Country: GB (occurrence: GB)
  Receive Date: 20250717
  Receipt Date: 20250717
  Transmission Date: 20251021
  Serious: Yes (Other)
  Sender: AUROBINDO
  Company Number: GB-MHRA-MED-202507031750393060-WMGLV

PATIENT
  Age: 15 Year
  Sex: Male
  Weight: 49 kg

DRUGS (1)
  1. MELATONIN [Suspect]
     Active Substance: MELATONIN
     Indication: Adverse drug reaction
     Route: 065
     Dates: start: 20230703, end: 20250626

REACTIONS (1)
  - Blood bilirubin [Not Recovered/Not Resolved]

NARRATIVE: CASE EVENT DATE: 20240901
